FAERS Safety Report 8495321-X (Version None)
Quarter: 2012Q3

REPORT INFORMATION
  Report Type: 
  Country: None (occurrence: None)
  Receive Date: 20120709
  Receipt Date: 20120622
  Transmission Date: 20120928
  Serious: No
  Sender: FDA-Public Use
  Company Number: US-ASTRAZENECA-2012SE42286

PATIENT
  Sex: Male

DRUGS (2)
  1. AVAPRO [Concomitant]
  2. CRESTOR [Suspect]
     Route: 048

REACTIONS (1)
  - ROSACEA [None]
